FAERS Safety Report 13827030 (Version 1)
Quarter: 2017Q3

REPORT INFORMATION
  Report Type: Spontaneous
  Country: US (occurrence: US)
  Receive Date: 20170802
  Receipt Date: 20170802
  Transmission Date: 20171127
  Serious: Yes (Other)
  Sender: FDA-Public Use
  Company Number: US-ROCHE-659786

PATIENT
  Age: 58 Year
  Sex: Female

DRUGS (3)
  1. PRAVASTATIN. [Concomitant]
     Active Substance: PRAVASTATIN
     Dosage: DRUG NAME: PROVACHOL
     Route: 065
  2. ZOLOFT [Concomitant]
     Active Substance: SERTRALINE HYDROCHLORIDE
     Route: 065
  3. BONIVA [Suspect]
     Active Substance: IBANDRONATE SODIUM
     Indication: OSTEOPOROSIS
     Route: 065

REACTIONS (6)
  - Gastritis [Unknown]
  - Gastric ulcer [Recovering/Resolving]
  - Gastric disorder [Unknown]
  - Gastric polyps [Unknown]
  - Nodule [Unknown]
  - Diarrhoea [Unknown]

NARRATIVE: CASE EVENT DATE: 20080721
